FAERS Safety Report 16606857 (Version 2)
Quarter: 2022Q1

REPORT INFORMATION
  Report Type: Spontaneous
  Country: CH (occurrence: CH)
  Receive Date: 20190722
  Receipt Date: 20220203
  Transmission Date: 20220423
  Serious: Yes (Disabling, Other)
  Sender: FDA-Public Use
  Company Number: CH-SM-2019-15002

PATIENT
  Age: 53 Year
  Sex: Female
  Weight: 69 kg

DRUGS (8)
  1. IBUPROFEN [Suspect]
     Active Substance: IBUPROFEN
     Dosage: 1800 MILLIGRAM DAILY;
     Route: 065
  2. CUBICIN [Suspect]
     Active Substance: DAPTOMYCIN
     Route: 042
     Dates: start: 20181211, end: 20190105
  3. RIFAMPIN [Suspect]
     Active Substance: RIFAMPIN
     Dosage: 900 MILLIGRAM DAILY;
     Route: 048
     Dates: start: 20181211, end: 20190105
  4. RIFAMPIN [Suspect]
     Active Substance: RIFAMPIN
     Dosage: 900 MILLIGRAM DAILY;
     Route: 048
     Dates: start: 20190107, end: 20190307
  5. PANTOPRAZOLE SODIUM [Concomitant]
     Active Substance: PANTOPRAZOLE SODIUM
     Dosage: 20 MILLIGRAM DAILY;
     Route: 065
  6. DAFALGAN [Concomitant]
     Active Substance: ACETAMINOPHEN
     Dosage: 1000 MILLIGRAM DAILY;
     Route: 065
  7. NALOXONE HYDROCHLORIDE\OXYCODONE HYDROCHLORIDE [Concomitant]
     Active Substance: NALOXONE HYDROCHLORIDE\OXYCODONE HYDROCHLORIDE
     Dosage: 5 MG/2.5 MG: PRN
  8. XARELTO [Concomitant]
     Active Substance: RIVAROXABAN
     Dosage: 10 MILLIGRAM DAILY;

REACTIONS (1)
  - Optic neuritis [Not Recovered/Not Resolved]

NARRATIVE: CASE EVENT DATE: 20181222
